FAERS Safety Report 10912851 (Version 3)
Quarter: 2015Q1

REPORT INFORMATION
  Report Type: Spontaneous
  Country: FR (occurrence: FR)
  Receive Date: 20150313
  Receipt Date: 20150330
  Transmission Date: 20150721
  Serious: Yes (Other)
  Sender: FDA-Public Use
  Company Number: FR-PFIZER INC-2015083786

PATIENT
  Age: 67 Year
  Sex: Male

DRUGS (15)
  1. ARACYTINE [Suspect]
     Active Substance: CYTARABINE
     Indication: FOLLICLE CENTRE LYMPHOMA, FOLLICULAR GRADE I, II, III
     Dosage: 400 MG, 2X/DAY DAY 6 TO DAY 3
     Route: 042
     Dates: start: 20150121, end: 20150124
  2. AZARGA [Concomitant]
     Active Substance: BRINZOLAMIDE\TIMOLOL MALEATE
     Dosage: UNK
  3. VALACICLOVIR [Concomitant]
     Active Substance: VALACYCLOVIR HYDROCHLORIDE
     Dosage: UNK
  4. VALSARTAN AND HYDROCHLOROTHIAZIDE [Concomitant]
     Active Substance: HYDROCHLOROTHIAZIDE\VALSARTAN
     Dosage: UNK
  5. LEVACT [Suspect]
     Active Substance: BENDAMUSTINE HYDROCHLORIDE
     Indication: FOLLICLE CENTRE LYMPHOMA, FOLLICULAR GRADE I, II, III
     Dosage: 400 MG, DAILY ON DAY 8 AND DAY 7
     Route: 042
     Dates: start: 20150119, end: 20150120
  6. EMEND [Suspect]
     Active Substance: APREPITANT
     Indication: ANTIEMETIC SUPPORTIVE CARE
     Dosage: 125 MG, DAILY THE FIRST DAY
     Route: 048
     Dates: start: 20150119
  7. SOLU-MEDROL [Suspect]
     Active Substance: METHYLPREDNISOLONE SODIUM SUCCINATE
     Indication: ANTIEMETIC SUPPORTIVE CARE
     Dosage: 80 MG, DAILY
     Route: 042
     Dates: start: 20150119, end: 20150126
  8. PLASMALYTE [Concomitant]
     Active Substance: ELECTROLYTES NOS
     Indication: FLUID REPLACEMENT
     Dosage: UNK
  9. SERESTA [Concomitant]
     Active Substance: OXAZEPAM
     Dosage: UNK
  10. LUMIGAN [Concomitant]
     Active Substance: BIMATOPROST
     Dosage: UNK
  11. DIFFU K [Concomitant]
     Active Substance: POTASSIUM CHLORIDE
     Dosage: UNK
  12. ETOPOSIDE MYLAN [Suspect]
     Active Substance: ETOPOSIDE
     Indication: FOLLICLE CENTRE LYMPHOMA, FOLLICULAR GRADE I, II, III
     Dosage: 200 MG, 2X/DAY DAY 6 TO DAY 3
     Route: 042
     Dates: start: 20150121, end: 20150124
  13. ZOPHREN [Suspect]
     Active Substance: ONDANSETRON
     Indication: ANTIEMETIC SUPPORTIVE CARE
     Dosage: 8 MG, DAILY
     Route: 042
     Dates: start: 20150119, end: 20150125
  14. EMEND [Suspect]
     Active Substance: APREPITANT
     Dosage: 80 MG, DAILY THE 8 FOLLOWING DAYS
     Route: 048
     Dates: end: 20150127
  15. ALLOPURINOL. [Concomitant]
     Active Substance: ALLOPURINOL
     Dosage: UNK

REACTIONS (1)
  - Atrial fibrillation [Recovered/Resolved]

NARRATIVE: CASE EVENT DATE: 20150122
